FAERS Safety Report 17685317 (Version 1)
Quarter: 2020Q2

REPORT INFORMATION
  Report Type: Spontaneous
  Country: US (occurrence: US)
  Receive Date: 20200417
  Receipt Date: 20200417
  Transmission Date: 20200714
  Serious: Yes (Hospitalization)
  Sender: FDA-Public Use
  Company Number: None

PATIENT
  Age: 62 Year
  Sex: Male

DRUGS (1)
  1. WARFARIN [Suspect]
     Active Substance: WARFARIN
     Indication: CARDIAC VENTRICULAR THROMBOSIS
     Dosage: ?          OTHER FREQUENCY:UNKNOWN;?
     Route: 048
     Dates: start: 20190325, end: 20200401

REACTIONS (2)
  - Haemorrhage [None]
  - Gastric haemorrhage [None]

NARRATIVE: CASE EVENT DATE: 20200406
